FAERS Safety Report 16844589 (Version 1)
Quarter: 2019Q4

REPORT INFORMATION
  Report Type: Spontaneous
  Country: US (occurrence: US)
  Receive Date: 20190923
  Receipt Date: 20190923
  Transmission Date: 20200122
  Serious: Yes (Life-Threatening, Hospitalization)
  Sender: FDA-Public Use
  Company Number: None

PATIENT
  Age: 74 Year
  Sex: Male
  Weight: 73 kg

DRUGS (1)
  1. WARFARIN [Suspect]
     Active Substance: WARFARIN
     Dosage: ?          OTHER FREQUENCY:47.5 TOTAL DOSE/WK;?

REACTIONS (4)
  - Rectal haemorrhage [None]
  - Radiation proctitis [None]
  - International normalised ratio increased [None]
  - Acute respiratory failure [None]

NARRATIVE: CASE EVENT DATE: 20190917
